FAERS Safety Report 20355868 (Version 1)
Quarter: 2022Q1

REPORT INFORMATION
  Report Type: Spontaneous
  Country: US (occurrence: None)
  Receive Date: 20220120
  Receipt Date: 20220120
  Transmission Date: 20220423
  Serious: No
  Sender: FDA-Public Use
  Company Number: 2022A018644

PATIENT
  Sex: Male
  Weight: 102.1 kg

DRUGS (1)
  1. SYMBICORT [Suspect]
     Active Substance: BUDESONIDE\FORMOTEROL FUMARATE DIHYDRATE
     Indication: Chronic obstructive pulmonary disease
     Dosage: 160MCG/4.5MCG, 2 INHALATIONS TWICE DAILY
     Route: 055

REACTIONS (7)
  - Memory impairment [Unknown]
  - Rib fracture [Unknown]
  - Head injury [Unknown]
  - Loss of consciousness [Unknown]
  - Pneumonia [Unknown]
  - Pulmonary mass [Not Recovered/Not Resolved]
  - Chronic obstructive pulmonary disease [Unknown]

NARRATIVE: CASE EVENT DATE: 20160101
